FAERS Safety Report 4821272-5 (Version None)
Quarter: 2005Q4

REPORT INFORMATION
  Report Type: 
  Country: None (occurrence: None)
  Receive Date: 20051104
  Receipt Date: 20051104
  Transmission Date: 20060501
  Serious: Yes (Disabling)
  Sender: FDA-Public Use
  Company Number: None

PATIENT
  Sex: Female
  Weight: 54.4316 kg

DRUGS (5)
  1. REMICADE [Suspect]
     Indication: ARTHRITIS
     Dosage: 5 MG/KG IV EVERY 8 WKS
     Route: 042
     Dates: start: 20000118, end: 20021001
  2. REMICADE [Suspect]
     Indication: CROHN'S DISEASE
     Dosage: 5 MG/KG IV EVERY 8 WKS
     Route: 042
     Dates: start: 20000118, end: 20021001
  3. REMICADE [Suspect]
     Dosage: 10 MG/KG IV EVERY 8 WKS
     Route: 042
     Dates: start: 20021001, end: 20031222
  4. METHOTREXATE [Concomitant]
  5. NEURONTIN [Concomitant]

REACTIONS (10)
  - BLINDNESS TRANSIENT [None]
  - BLOOD HOMOCYSTEINE INCREASED [None]
  - CHEST PAIN [None]
  - FEELING ABNORMAL [None]
  - HAEMORRHAGE [None]
  - IMMUNOSUPPRESSION [None]
  - SKIN LESION [None]
  - VASODILATATION [None]
  - VISUAL DISTURBANCE [None]
  - WHITE BLOOD CELL COUNT DECREASED [None]
